FAERS Safety Report 14379924 (Version 3)
Quarter: 2018Q1

REPORT INFORMATION
  Report Type: Spontaneous
  Country: JP (occurrence: JP)
  Receive Date: 20180112
  Receipt Date: 20180130
  Transmission Date: 20180509
  Serious: Yes (Death)
  Sender: FDA-Public Use
  Company Number: JP-009507513-1801JPN003373

PATIENT
  Age: 50 Year
  Sex: Male

DRUGS (15)
  1. DIAZEPAM. [Suspect]
     Active Substance: DIAZEPAM
     Dosage: UNK
  2. ETIZOLAM [Suspect]
     Active Substance: ETIZOLAM
     Dosage: UNK
  3. PROMETHAZINE [Suspect]
     Active Substance: PROMETHAZINE\PROMETHAZINE HYDROCHLORIDE
     Dosage: UNK
  4. KETOPROFEN. [Suspect]
     Active Substance: KETOPROFEN
     Dosage: UNK
  5. OXAZEPAM. [Suspect]
     Active Substance: OXAZEPAM
     Dosage: UNK
  6. ZOTEPINE [Suspect]
     Active Substance: ZOTEPINE
     Dosage: UNK
  7. FLUNITRAZEPAM [Suspect]
     Active Substance: FLUNITRAZEPAM
     Dosage: UNK
  8. RISPERIDONE. [Suspect]
     Active Substance: RISPERIDONE
     Dosage: UNK
  9. SPIRONOLACTONE. [Suspect]
     Active Substance: SPIRONOLACTONE
     Dosage: UNK
  10. CHLORPROMAZINE. [Suspect]
     Active Substance: CHLORPROMAZINE
     Dosage: UNK
  11. NIFEDIPINE. [Suspect]
     Active Substance: NIFEDIPINE
     Dosage: UNK
  12. VALSARTAN. [Suspect]
     Active Substance: VALSARTAN
     Dosage: UNK
  13. BIPERIDEN [Suspect]
     Active Substance: BIPERIDEN
     Dosage: UNK
  14. NATEGLINIDE. [Suspect]
     Active Substance: NATEGLINIDE
     Dosage: UNK
  15. BELSOMRA [Suspect]
     Active Substance: SUVOREXANT
     Indication: SUICIDE ATTEMPT
     Dosage: 20 MG, ONCE NIGHTLY
     Route: 048

REACTIONS (1)
  - Toxicity to various agents [Fatal]
